FAERS Safety Report 5402541-7 (Version None)
Quarter: 2007Q3

REPORT INFORMATION
  Report Type: 
  Country: None (occurrence: None)
  Receive Date: 20070801
  Receipt Date: 20061031
  Transmission Date: 20080115
  Serious: No
  Sender: FDA-Public Use
  Company Number: A0625595A

PATIENT
  Age: 17 Year
  Sex: Female

DRUGS (3)
  1. IMITREX [Suspect]
     Indication: MIGRAINE
     Dosage: 100MG AS REQUIRED
     Route: 048
     Dates: start: 20061021
  2. DEPAKOTE [Concomitant]
  3. RANITIDINE [Concomitant]

REACTIONS (1)
  - SOMNOLENCE [None]
